FAERS Safety Report 8985537 (Version 1)
Quarter: 2012Q4

REPORT INFORMATION
  Report Type: 
  Country: US (occurrence: US)
  Receive Date: 20121226
  Receipt Date: 20121226
  Transmission Date: 20130627
  Serious: Yes (Hospitalization, Other)
  Sender: FDA-Public Use
  Company Number: US-JNJFOC-20121210963

PATIENT
  Age: 84 Year
  Sex: Female
  Weight: 40.82 kg

DRUGS (4)
  1. ROGAINE FOR WOMEN REGULAR STRENGTH [Suspect]
     Route: 061
  2. ROGAINE FOR WOMEN REGULAR STRENGTH [Suspect]
     Indication: ALOPECIA
     Dosage: Just sqeeze till it got to the line
     Route: 061
     Dates: end: 2012
  3. VOLTAREN [Concomitant]
     Indication: ARTHROPATHY
     Dosage: from 1 year
     Route: 065
  4. NEXIUM [Concomitant]
     Indication: DYSPEPSIA
     Dosage: from long time
     Route: 065

REACTIONS (4)
  - Loss of consciousness [Unknown]
  - Fall [Unknown]
  - Underdose [Unknown]
  - Tooth fracture [Unknown]
